FAERS Safety Report 4385251-7 (Version None)
Quarter: 2004Q2

REPORT INFORMATION
  Report Type: 
  Country: None (occurrence: None)
  Receive Date: 20040625
  Receipt Date: 20040621
  Transmission Date: 20050107
  Serious: Yes (Hospitalization)
  Sender: FDA-Public Use
  Company Number: DE-MERCK-0406USA02075

PATIENT
  Age: 71 Year
  Sex: Female

DRUGS (2)
  1. MODURETIC 5-50 [Suspect]
     Indication: HYPERTENSION
     Route: 048
  2. LOPIRIN [Suspect]
     Indication: HYPERTENSION
     Route: 065

REACTIONS (1)
  - ACUTE MYELOID LEUKAEMIA [None]
